FAERS Safety Report 17264712 (Version 3)
Quarter: 2020Q1

REPORT INFORMATION
  Report Type: Spontaneous
  Country: US (occurrence: US)
  Receive Date: 20200113
  Receipt Date: 20200205
  Transmission Date: 20200409
  Serious: Yes (Other)
  Sender: FDA-Public Use
  Company Number: US-PFIZER INC-2020014916

PATIENT
  Age: 66 Year
  Sex: Female

DRUGS (1)
  1. XELJANZ XR [Suspect]
     Active Substance: TOFACITINIB CITRATE
     Dosage: 11 MG

REACTIONS (10)
  - Deafness [Unknown]
  - Gait disturbance [Unknown]
  - Pain in extremity [Unknown]
  - Back pain [Unknown]
  - Pain [Unknown]
  - Bronchitis [Unknown]
  - Blood pressure abnormal [Unknown]
  - Laryngitis [Unknown]
  - Loss of personal independence in daily activities [Unknown]
  - Dysstasia [Unknown]
